FAERS Safety Report 5624973-4 (Version None)
Quarter: 2008Q1

REPORT INFORMATION
  Report Type: 
  Country: None (occurrence: None)
  Receive Date: 20080213
  Receipt Date: 20080201
  Transmission Date: 20080703
  Serious: Yes (Other)
  Sender: FDA-Public Use
  Company Number: US-PFIZER INC-2007108324

PATIENT
  Sex: Female

DRUGS (1)
  1. LIPITOR [Suspect]
     Dates: start: 19990826, end: 20060101

REACTIONS (12)
  - ABASIA [None]
  - ACTIVITIES OF DAILY LIVING IMPAIRED [None]
  - CRYING [None]
  - EMOTIONAL DISORDER [None]
  - FEAR [None]
  - FEAR OF FALLING [None]
  - GAIT DISTURBANCE [None]
  - HYPERHIDROSIS [None]
  - MIDDLE INSOMNIA [None]
  - PAIN [None]
  - PAIN IN EXTREMITY [None]
  - SENSORY DISTURBANCE [None]
